FAERS Safety Report 16599331 (Version 1)
Quarter: 2019Q3

REPORT INFORMATION
  Report Type: Spontaneous
  Country: SG (occurrence: SG)
  Receive Date: 20190719
  Receipt Date: 20190719
  Transmission Date: 20191004
  Serious: Yes (Life-Threatening, Hospitalization, Other)
  Sender: FDA-Public Use
  Company Number: SG-ELITE LABORATORIES INC.-2019ELT00032

PATIENT
  Age: 3 Year
  Sex: Male

DRUGS (1)
  1. METHADONE HYDROCHLORIDE. [Suspect]
     Active Substance: METHADONE HYDROCHLORIDE
     Dosage: UNK, ONCE
     Route: 048

REACTIONS (6)
  - Toxic encephalopathy [Recovered/Resolved]
  - Respiratory acidosis [Recovered/Resolved]
  - Overdose [Recovered/Resolved]
  - Metabolic acidosis [Recovered/Resolved]
  - Cardio-respiratory arrest [Recovered/Resolved]
  - Accidental exposure to product by child [Recovered/Resolved]
